FAERS Safety Report 6214942-8 (Version None)
Quarter: 2009Q2

REPORT INFORMATION
  Report Type: 
  Country: None (occurrence: None)
  Receive Date: 20090604
  Receipt Date: 20090528
  Transmission Date: 20091009
  Serious: Yes (Death, Life-Threatening, Hospitalization, Other)
  Sender: FDA-Public Use
  Company Number: ES-AVENTIS-200915427GDDC

PATIENT
  Age: 62 Year
  Sex: Male
  Weight: 67.6 kg

DRUGS (3)
  1. DOCETAXEL [Suspect]
     Route: 042
     Dates: start: 20090330, end: 20090330
  2. OXALIPLATIN [Suspect]
     Route: 042
     Dates: start: 20090330, end: 20090330
  3. CAPECITABINE [Suspect]
     Route: 048
     Dates: start: 20090330, end: 20090415

REACTIONS (2)
  - GASTROINTESTINAL PERFORATION [None]
  - UPPER GASTROINTESTINAL HAEMORRHAGE [None]
